FAERS Safety Report 8772993 (Version 2)
Quarter: 2012Q4

REPORT INFORMATION
  Report Type: 
  Country: US (occurrence: US)
  Receive Date: 20120907
  Receipt Date: 20121010
  Transmission Date: 20130627
  Serious: No
  Sender: FDA-Public Use
  Company Number: US-009507513-1208USA010238

PATIENT

DRUGS (1)
  1. IMPLANON [Suspect]
     Indication: CONTRACEPTION
     Dosage: 68 mg, UNK
     Route: 059
     Dates: start: 201008

REACTIONS (3)
  - Weight increased [Unknown]
  - Mood altered [Unknown]
  - Complication of device removal [Unknown]
